FAERS Safety Report 4510725-5 (Version None)
Quarter: 2004Q4

REPORT INFORMATION
  Report Type: 
  Country: None (occurrence: None)
  Receive Date: 20041122
  Receipt Date: 20041109
  Transmission Date: 20050328
  Serious: Yes (Death)
  Sender: FDA-Public Use
  Company Number: 2004089247

PATIENT
  Sex: Female

DRUGS (1)
  1. SILDENAFIL (SILDENAFIL) [Suspect]
     Indication: PULMONARY HYPERTENSION
     Dosage: 200 MG (50 MG, 4 IN 1 D), ORAL
     Route: 048

REACTIONS (1)
  - DEATH [None]
